FAERS Safety Report 16646476 (Version 1)
Quarter: 2019Q3

REPORT INFORMATION
  Report Type: Spontaneous
  Country: SE (occurrence: SE)
  Receive Date: 20190730
  Receipt Date: 20190730
  Transmission Date: 20191004
  Serious: Yes (Disabling)
  Sender: FDA-Public Use
  Company Number: SE-009507513-1907SWE013431

PATIENT
  Age: 74 Year
  Sex: Female
  Weight: 91 kg

DRUGS (14)
  1. PREDNISOLONE. [Suspect]
     Active Substance: PREDNISOLONE
     Indication: RHEUMATIC DISORDER
     Dosage: ONE (1) TABLET ONCE DAILY
     Dates: start: 2004
  2. BEHEPAN (CYANOCOBALAMIN) [Suspect]
     Active Substance: CYANOCOBALAMIN
     Indication: VITAMIN B12 DEFICIENCY
     Dosage: ONE (1) TABLET ONCE DAILY
     Dates: start: 2012
  3. METOPROLOL. [Suspect]
     Active Substance: METOPROLOL
     Dosage: 50 MILLIGRAM, QD
     Dates: start: 2011
  4. ALVEDON [Suspect]
     Active Substance: ACETAMINOPHEN
     Indication: PAIN
     Dosage: ONE (1) TABLET AS NEEDED
     Dates: start: 20181227
  5. CANDESARTAN CILEXETIL. [Suspect]
     Active Substance: CANDESARTAN CILEXETIL
     Dosage: TWO (2) TABLETS TWICE DAILY
     Dates: start: 201811
  6. ALLOPURINOL. [Suspect]
     Active Substance: ALLOPURINOL
     Indication: PROPHYLAXIS
     Dosage: TWO(2) TABLETS ONCE DAILY
     Dates: start: 20181126
  7. FOLIC ACID. [Suspect]
     Active Substance: FOLIC ACID
     Indication: FOLATE DEFICIENCY
     Dosage: 1 MILLIGRAM, QD
     Dates: start: 2017
  8. WARAN [Suspect]
     Active Substance: WARFARIN SODIUM
     Indication: THROMBOSIS PROPHYLAXIS
     Dosage: DOSE SET AFTER BLOOD TEST.1,2,2,1,2,1,2 WEEKLY DOSE
     Dates: start: 2009
  9. DIVISUN [Suspect]
     Active Substance: CHOLECALCIFEROL
     Indication: VITAMIN SUPPLEMENTATION
     Dosage: 2000 INTERNATIONAL UNIT, ONE (1) TABLET ONCE DAILY
     Dates: start: 20181210, end: 20190619
  10. OMEPRAZOLE. [Suspect]
     Active Substance: OMEPRAZOLE
     Indication: GASTRIC PH DECREASED
     Dosage: DOSE:1,TWO (2) CAPSULES ONCE DAILYFOR FOUR (4) WEEKS. THEN ONE (1) CAPSULE ONCE DAILY
     Dates: start: 20181129
  11. POTASSIUM CHLORIDE. [Suspect]
     Active Substance: POTASSIUM CHLORIDE
     Indication: HYPOKALAEMIA
     Dosage: 1500 MILLIGRAM, 1 TABLET TWICE DAILY
     Dates: start: 20181129
  12. MIRTAZAPINE. [Suspect]
     Active Substance: MIRTAZAPINE
     Indication: SLEEP DISORDER
     Dosage: HALF (0.5) A TABLET ONCE DAILY AT 19:00
     Dates: start: 20181127
  13. DIVISUN [Suspect]
     Active Substance: CHOLECALCIFEROL
     Indication: OSTEOPOROSIS
     Dosage: UNK
  14. FURIX (FUROSEMIDE) [Suspect]
     Active Substance: FUROSEMIDE
     Indication: FLUID RETENTION
     Dosage: ONE (1) TABLET DAILY, MORE AS NEEDED
     Dates: start: 2012

REACTIONS (1)
  - Drug eruption [Not Recovered/Not Resolved]

NARRATIVE: CASE EVENT DATE: 201901
